FAERS Safety Report 4935611-8 (Version None)
Quarter: 2006Q1

REPORT INFORMATION
  Report Type: 
  Country: None (occurrence: None)
  Receive Date: 20060307
  Receipt Date: 20050919
  Transmission Date: 20060701
  Serious: No
  Sender: FDA-Public Use
  Company Number: US-GLAXOSMITHKLINE-A0574851A

PATIENT
  Age: 80 Year
  Sex: Female

DRUGS (4)
  1. REQUIP [Suspect]
     Indication: RESTLESS LEGS SYNDROME
     Dosage: .25MG PER DAY
     Route: 048
     Dates: start: 20050901
  2. COUMADIN [Concomitant]
  3. TOPROL [Concomitant]
  4. CALCIUM GLUCONATE [Concomitant]

REACTIONS (3)
  - CHILLS [None]
  - DRUG INEFFECTIVE [None]
  - PYREXIA [None]
